FAERS Safety Report 4496101-2 (Version None)
Quarter: 2004Q4

REPORT INFORMATION
  Report Type: 
  Country: None (occurrence: None)
  Receive Date: 20041108
  Receipt Date: 20041103
  Transmission Date: 20050328
  Serious: Yes (Life-Threatening, Hospitalization, Disabling, Other)
  Sender: FDA-Public Use
  Company Number: NL-MERCK-0411NLD00003

PATIENT
  Age: 72 Year
  Sex: Male

DRUGS (12)
  1. VIOXX [Suspect]
     Route: 048
     Dates: start: 20030602, end: 20030714
  2. VIOXX [Suspect]
     Route: 048
     Dates: start: 20030116, end: 20030602
  3. VIOXX [Suspect]
     Route: 048
     Dates: start: 20030714, end: 20030731
  4. SPIRONOLACTONE [Concomitant]
     Route: 048
  5. BISOPROLOL FUMARATE [Concomitant]
     Route: 048
  6. DIGOXIN [Concomitant]
     Route: 048
  7. BUDESONIDE AND FORMOTEROL FUMARATE [Concomitant]
     Route: 055
  8. TIOTROPIUM BROMIDE [Concomitant]
     Route: 055
  9. FUROSEMIDE [Concomitant]
     Route: 048
  10. PERINDOPRIL ERBUMINE [Concomitant]
     Route: 048
  11. ASPIRIN CALCIUM [Concomitant]
     Route: 048
  12. PROSCAR [Concomitant]
     Route: 048

REACTIONS (1)
  - MYOCARDIAL INFARCTION [None]
